FAERS Safety Report 5950920-1 (Version None)
Quarter: 2008Q4

REPORT INFORMATION
  Report Type: 
  Country: None (occurrence: None)
  Receive Date: 20081110
  Receipt Date: 20081030
  Transmission Date: 20090506
  Serious: Yes (Hospitalization)
  Sender: FDA-Public Use
  Company Number: 1-16800209

PATIENT
  Age: 53 Year
  Sex: Female
  Weight: 81.6475 kg

DRUGS (6)
  1. WARFARIN SODIUM [Suspect]
     Indication: ATRIAL FIBRILLATION
     Dosage: 10 MG DAILY, ORAL
     Route: 048
     Dates: start: 20050101
  2. RISPERIDONE [Concomitant]
  3. SIMVASTATIN [Concomitant]
  4. METFORMIN HCL [Concomitant]
  5. AMITRIPTYLINE HCL [Concomitant]
  6. SOMA [Concomitant]

REACTIONS (23)
  - ASTHENIA [None]
  - BACK PAIN [None]
  - BRONCHITIS [None]
  - CARDIAC FAILURE CONGESTIVE [None]
  - CHEST PAIN [None]
  - CONFUSIONAL STATE [None]
  - CONTUSION [None]
  - CONVERSION DISORDER [None]
  - DEPRESSION [None]
  - DRUG INEFFECTIVE [None]
  - DYSARTHRIA [None]
  - GASTROENTERITIS VIRAL [None]
  - HEPARIN-INDUCED THROMBOCYTOPENIA [None]
  - HYPERCOAGULATION [None]
  - HYPOKALAEMIA [None]
  - ILEUS [None]
  - INCREASED TENDENCY TO BRUISE [None]
  - INTERNATIONAL NORMALISED RATIO DECREASED [None]
  - INTERNATIONAL NORMALISED RATIO FLUCTUATION [None]
  - INTERNATIONAL NORMALISED RATIO INCREASED [None]
  - NEUROLOGICAL SYMPTOM [None]
  - PAIN IN EXTREMITY [None]
  - TRANSIENT ISCHAEMIC ATTACK [None]
